FAERS Safety Report 23844487 (Version 4)
Quarter: 2024Q3

REPORT INFORMATION
  Report Type: Spontaneous
  Country: US (occurrence: US)
  Receive Date: 20240510
  Receipt Date: 20240820
  Transmission Date: 20241017
  Serious: Yes (Hospitalization)
  Sender: BIOMARIN
  Company Number: US-SA-SAC20240430000742

PATIENT

DRUGS (2)
  1. LARONIDASE [Suspect]
     Active Substance: LARONIDASE
     Indication: Mucopolysaccharidosis I
     Dosage: 26.1 (UNIT NOT KNOWN), QW
     Route: 042
     Dates: start: 20190207
  2. LARONIDASE [Suspect]
     Active Substance: LARONIDASE
     Dosage: 26.1 (UNIT NOT KNOWN), QW
     Route: 042
     Dates: start: 201902

REACTIONS (1)
  - Mitral valve disease [Recovering/Resolving]
